FAERS Safety Report 5097393-1 (Version None)
Quarter: 2006Q3

REPORT INFORMATION
  Report Type: 
  Country: None (occurrence: None)
  Receive Date: 20060906
  Receipt Date: 20060825
  Transmission Date: 20061208
  Serious: Yes (Death)
  Sender: FDA-Public Use
  Company Number: US-SANOFI-SYNTHELABO-A03200605365

PATIENT
  Age: 58 Year
  Sex: Male

DRUGS (1)
  1. KAYEXALATE [Suspect]
     Indication: HYPERKALAEMIA
     Dosage: UNK
     Route: 048

REACTIONS (1)
  - ASPIRATION [None]
